FAERS Safety Report 18944381 (Version 1)
Quarter: 2021Q1

REPORT INFORMATION
  Report Type: Spontaneous
  Country: SA (occurrence: SA)
  Receive Date: 20210226
  Receipt Date: 20210226
  Transmission Date: 20210420
  Serious: Yes (Other)
  Sender: FDA-Public Use
  Company Number: SA-ALKEM LABORATORIES LIMITED-SA-ALKEM-2021-00888

PATIENT
  Age: 24 Year
  Sex: Female

DRUGS (3)
  1. MYCOPHENOLATE MOFETIL. [Suspect]
     Active Substance: MYCOPHENOLATE MOFETIL
     Indication: FOCAL SEGMENTAL GLOMERULOSCLEROSIS
     Dosage: UNK
     Route: 065
  2. PREDNISOLONE. [Concomitant]
     Active Substance: PREDNISOLONE
     Indication: FOCAL SEGMENTAL GLOMERULOSCLEROSIS
     Dosage: UNK
     Route: 065
  3. TACROLIMUS. [Suspect]
     Active Substance: TACROLIMUS
     Indication: FOCAL SEGMENTAL GLOMERULOSCLEROSIS
     Dosage: UNK
     Route: 065

REACTIONS (2)
  - Optic atrophy [Recovered/Resolved]
  - Drug ineffective [Unknown]
